FAERS Safety Report 10571357 (Version 2)
Quarter: 2014Q4

REPORT INFORMATION
  Report Type: Spontaneous
  Country: US (occurrence: US)
  Receive Date: 20141107
  Receipt Date: 20141107
  Transmission Date: 20150529
  Serious: Yes (Hospitalization, Other)
  Sender: FDA-Public Use
  Company Number: US-GLAXOSMITHKLINE-A0966875A

PATIENT
  Sex: Female

DRUGS (1)
  1. AVANDIA [Suspect]
     Active Substance: ROSIGLITAZONE MALEATE
     Indication: DIABETES MELLITUS
     Dosage: 8 MG, UNK
     Route: 048
     Dates: start: 200403, end: 200610

REACTIONS (5)
  - Angina pectoris [Unknown]
  - Chest pain [Unknown]
  - Coronary artery disease [Unknown]
  - Myocardial infarction [Unknown]
  - Acute coronary syndrome [Unknown]
